FAERS Safety Report 9697395 (Version 2)
Quarter: 2013Q4

REPORT INFORMATION
  Report Type: Spontaneous
  Country: DE (occurrence: DE)
  Receive Date: 20131120
  Receipt Date: 20131230
  Transmission Date: 20140711
  Serious: Yes (Life-Threatening, Other)
  Sender: FDA-Public Use
  Company Number: DE-JNJFOC-20131106943

PATIENT
  Sex: 0

DRUGS (30)
  1. DOXORUBICIN [Suspect]
     Indication: SARCOMA
     Dosage: 4 HOUR INFUSION ONDAY 1
     Route: 042
  2. DOXORUBICIN [Suspect]
     Indication: LEIOMYOSARCOMA
     Dosage: 4 HOUR INFUSION ONDAY 1
     Route: 042
  3. DOXORUBICIN [Suspect]
     Indication: LIPOSARCOMA
     Dosage: 4 HOUR INFUSION ONDAY 1
     Route: 042
  4. DOXORUBICIN [Suspect]
     Indication: SYNOVIAL SARCOMA
     Dosage: 4 HOUR INFUSION ONDAY 1
     Route: 042
  5. DOXORUBICIN [Suspect]
     Indication: SARCOMA
     Dosage: 4 HOUR INFUSION ONDAY 1
     Route: 042
  6. DOXORUBICIN [Suspect]
     Indication: SARCOMA
     Dosage: 4 HOUR INFUSION ONDAY 1
     Route: 042
  7. DOXORUBICIN [Suspect]
     Indication: LEIOMYOSARCOMA
     Dosage: 4 HOUR INFUSION ONDAY 1
     Route: 042
  8. DOXORUBICIN [Suspect]
     Indication: LIPOSARCOMA
     Dosage: 4 HOUR INFUSION ONDAY 1
     Route: 042
  9. DOXORUBICIN [Suspect]
     Indication: SYNOVIAL SARCOMA
     Dosage: 4 HOUR INFUSION ONDAY 1
     Route: 042
  10. DOXORUBICIN [Suspect]
     Indication: SARCOMA
     Dosage: 4 HOUR INFUSION ONDAY 1
     Route: 042
  11. IFOSFAMIDE [Suspect]
     Indication: SARCOMA
     Dosage: 4 G/M2 AS A 24 H-CONTINUOUS INFUSION ON DAYS 1-3 RESULTING IN 12 G/M2 OVER 72 H
     Route: 042
  12. IFOSFAMIDE [Suspect]
     Indication: LEIOMYOSARCOMA
     Dosage: 4 G/M2 AS A 24 H-CONTINUOUS INFUSION ON DAYS 1-3 RESULTING IN 12 G/M2 OVER 72 H
     Route: 042
  13. IFOSFAMIDE [Suspect]
     Indication: LIPOSARCOMA
     Dosage: 4 G/M2 AS A 24 H-CONTINUOUS INFUSION ON DAYS 1-3 RESULTING IN 12 G/M2 OVER 72 H
     Route: 042
  14. IFOSFAMIDE [Suspect]
     Indication: SYNOVIAL SARCOMA
     Dosage: 4 G/M2 AS A 24 H-CONTINUOUS INFUSION ON DAYS 1-3 RESULTING IN 12 G/M2 OVER 72 H
     Route: 042
  15. IFOSFAMIDE [Suspect]
     Indication: SARCOMA
     Dosage: 4 G/M2 AS A 24 H-CONTINUOUS INFUSION ON DAYS 1-3 RESULTING IN 12 G/M2 OVER 72 H
     Route: 042
  16. MESNA [Suspect]
     Indication: SARCOMA
     Route: 065
  17. MESNA [Suspect]
     Indication: LEIOMYOSARCOMA
     Route: 065
  18. MESNA [Suspect]
     Indication: LIPOSARCOMA
     Route: 065
  19. MESNA [Suspect]
     Indication: SYNOVIAL SARCOMA
     Route: 065
  20. MESNA [Suspect]
     Indication: SARCOMA
     Route: 065
  21. BICARBONATE [Suspect]
     Indication: SARCOMA
     Route: 065
  22. BICARBONATE [Suspect]
     Indication: LEIOMYOSARCOMA
     Route: 065
  23. BICARBONATE [Suspect]
     Indication: LIPOSARCOMA
     Route: 065
  24. BICARBONATE [Suspect]
     Indication: SYNOVIAL SARCOMA
     Route: 065
  25. BICARBONATE [Suspect]
     Indication: SARCOMA
     Route: 065
  26. GRANULOCYTE COLONY-STIMULATING FACTOR NOS [Suspect]
     Indication: SARCOMA
     Route: 058
  27. GRANULOCYTE COLONY-STIMULATING FACTOR NOS [Suspect]
     Indication: LEIOMYOSARCOMA
     Route: 058
  28. GRANULOCYTE COLONY-STIMULATING FACTOR NOS [Suspect]
     Indication: LIPOSARCOMA
     Route: 058
  29. GRANULOCYTE COLONY-STIMULATING FACTOR NOS [Suspect]
     Indication: SYNOVIAL SARCOMA
     Route: 058
  30. GRANULOCYTE COLONY-STIMULATING FACTOR NOS [Suspect]
     Indication: SARCOMA
     Route: 058

REACTIONS (10)
  - Leukopenia [Unknown]
  - Nausea [Unknown]
  - Deep vein thrombosis [Unknown]
  - Dyspnoea [Unknown]
  - Febrile neutropenia [Unknown]
  - Thrombocytopenia [Unknown]
  - Mucosal inflammation [Unknown]
  - Neurotoxicity [Unknown]
  - Sarcoma [Unknown]
  - Off label use [Unknown]
